FAERS Safety Report 5213558-X (Version None)
Quarter: 2007Q1

REPORT INFORMATION
  Report Type: 
  Country: None (occurrence: None)
  Receive Date: 20070119
  Receipt Date: 20070109
  Transmission Date: 20070707
  Serious: Yes (Other)
  Sender: FDA-Public Use
  Company Number: GB-ABBOTT-07P-167-0355558-00

PATIENT
  Age: 29 Year
  Sex: Female
  Weight: 50 kg

DRUGS (3)
  1. KALETRA [Suspect]
     Indication: DRUG USE FOR UNKNOWN INDICATION
     Dates: start: 20060725
  2. VIREAD [Suspect]
     Indication: DRUG USE FOR UNKNOWN INDICATION
  3. SAQUINAVIR MESILATE [Suspect]
     Indication: DRUG USE FOR UNKNOWN INDICATION
     Dates: start: 20060725, end: 20060727

REACTIONS (3)
  - BACK PAIN [None]
  - DYSPNOEA [None]
  - MYALGIA [None]
